FAERS Safety Report 6156186-4 (Version None)
Quarter: 2009Q2

REPORT INFORMATION
  Report Type: 
  Country: None (occurrence: None)
  Receive Date: 20090413
  Receipt Date: 20090413
  Transmission Date: 20091009
  Serious: No
  Sender: FDA-Public Use
  Company Number: None

PATIENT
  Age: 68 Year
  Sex: Male
  Weight: 99.7913 kg

DRUGS (1)
  1. AMOXICILLIN [Suspect]
     Indication: DENTAL DISORDER PROPHYLAXIS
     Dosage: 2,000 MG ONE HOUR PRIOR X1 PO; 500 MG X3 DAILY PO
     Route: 048
     Dates: start: 20090407, end: 20090409

REACTIONS (3)
  - BACTERAEMIA [None]
  - POST PROCEDURAL COMPLICATION [None]
  - PRODUCT QUALITY ISSUE [None]
